FAERS Safety Report 19220161 (Version 2)
Quarter: 2021Q2

REPORT INFORMATION
  Report Type: Spontaneous
  Country: GB (occurrence: GB)
  Receive Date: 20210506
  Receipt Date: 20210623
  Transmission Date: 20210717
  Serious: Yes (Death, Life-Threatening, Hospitalization, Disabling, Congenital Anomaly, Other)
  Sender: FDA-Public Use
  Company Number: GB-AUROBINDO-AUR-APL-2021-018131

PATIENT
  Age: 59 Year
  Sex: Male
  Weight: 92.09 kg

DRUGS (1)
  1. AMOXICILLIN CAPSULE [Suspect]
     Active Substance: AMOXICILLIN
     Indication: PRODUCT USED FOR UNKNOWN INDICATION
     Dosage: 250 MILLIGRAM
     Route: 065

REACTIONS (2)
  - Vomiting [Fatal]
  - Adverse drug reaction [Fatal]

NARRATIVE: CASE EVENT DATE: 20200401
